FAERS Safety Report 24235945 (Version 1)
Quarter: 2024Q3

REPORT INFORMATION
  Report Type: Spontaneous
  Country: US (occurrence: US)
  Receive Date: 20240822
  Receipt Date: 20240822
  Transmission Date: 20241017
  Serious: No
  Sender: ENDO
  Company Number: US-ENDO PHARMACEUTICALS INC-2024-001770

PATIENT
  Age: 44 Year
  Sex: Male

DRUGS (9)
  1. TESTOPEL [Suspect]
     Active Substance: TESTOSTERONE
     Indication: Blood testosterone decreased
     Dosage: UNK UNKNOWN, UNKNOWN
     Route: 065
     Dates: start: 20191018
  2. TESTOPEL [Suspect]
     Active Substance: TESTOSTERONE
     Indication: Blood testosterone decreased
     Dosage: UNK UNKNOWN, UNKNOWN
     Route: 065
     Dates: start: 20191018
  3. TESTOPEL [Suspect]
     Active Substance: TESTOSTERONE
     Indication: Blood testosterone decreased
     Dosage: UNK UNKNOWN, UNKNOWN
     Route: 065
     Dates: start: 20191018
  4. TESTOPEL [Suspect]
     Active Substance: TESTOSTERONE
     Indication: Hypogonadism
     Dosage: 6 PELLETS, UNKNOWN
     Route: 065
     Dates: start: 20231222
  5. TESTOPEL [Suspect]
     Active Substance: TESTOSTERONE
     Indication: Hypogonadism
     Dosage: 6 PELLETS, UNKNOWN
     Route: 065
     Dates: start: 20231222
  6. TESTOPEL [Suspect]
     Active Substance: TESTOSTERONE
     Indication: Hypogonadism
     Dosage: 6 PELLETS, UNKNOWN
     Route: 065
     Dates: start: 20231222
  7. TESTOPEL [Suspect]
     Active Substance: TESTOSTERONE
     Dosage: 12 PELLETS, UNKNOWN
     Route: 065
     Dates: start: 20240410
  8. TESTOPEL [Suspect]
     Active Substance: TESTOSTERONE
     Dosage: 12 PELLETS, UNKNOWN
     Route: 065
     Dates: start: 20240410
  9. TESTOPEL [Suspect]
     Active Substance: TESTOSTERONE
     Dosage: 12 PELLETS, UNKNOWN
     Route: 065
     Dates: start: 20240410

REACTIONS (3)
  - Blood testosterone decreased [Not Recovered/Not Resolved]
  - Drug ineffective [Not Recovered/Not Resolved]
  - Off label use [Not Recovered/Not Resolved]

NARRATIVE: CASE EVENT DATE: 20240410
